FAERS Safety Report 9927375 (Version 3)
Quarter: 2014Q2

REPORT INFORMATION
  Report Type: Spontaneous
  Country: US (occurrence: US)
  Receive Date: 20140226
  Receipt Date: 20140513
  Transmission Date: 20141212
  Serious: Yes (Death, Hospitalization, Other)
  Sender: FDA-Public Use
  Company Number: US-GILEAD-2014-0095615

PATIENT
  Age: 42 Year
  Sex: Male
  Weight: 91.16 kg

DRUGS (12)
  1. LETAIRIS [Suspect]
     Indication: PULMONARY HYPERTENSION
     Dosage: 5 MG, QD
     Route: 065
     Dates: start: 20130627, end: 201401
  2. LETAIRIS [Suspect]
     Indication: COR PULMONALE CHRONIC
  3. ADCIRCA [Concomitant]
  4. FUROSEMIDE [Concomitant]
  5. FEXOFENADINE [Concomitant]
  6. INSPRA                             /01362602/ [Concomitant]
  7. LACTULOSE [Concomitant]
  8. LEXAPRO [Concomitant]
  9. LUNESTA [Concomitant]
  10. TRAMADOL [Concomitant]
  11. XIFAXAN [Concomitant]
  12. ZANTAC [Concomitant]

REACTIONS (2)
  - Intestinal perforation [Fatal]
  - Septic shock [Fatal]
